FAERS Safety Report 11222682 (Version 1)
Quarter: 2015Q2

REPORT INFORMATION
  Report Type: Spontaneous
  Country: IN (occurrence: IN)
  Receive Date: 20150626
  Receipt Date: 20150626
  Transmission Date: 20150821
  Serious: Yes (Hospitalization)
  Sender: FDA-Public Use
  Company Number: IN-BAYER-2015-361973

PATIENT
  Age: 63 Year
  Sex: Female

DRUGS (4)
  1. BLEOMYCIN [Suspect]
     Active Substance: BLEOMYCIN SULFATE
     Indication: HODGKIN^S DISEASE
  2. VINBLASTINE [Suspect]
     Active Substance: VINBLASTINE
     Indication: HODGKIN^S DISEASE
  3. DACARBAZINE. [Suspect]
     Active Substance: DACARBAZINE
     Indication: HODGKIN^S DISEASE
  4. ADRIAMYCIN [Suspect]
     Active Substance: DOXORUBICIN HYDROCHLORIDE
     Indication: HODGKIN^S DISEASE

REACTIONS (14)
  - Headache [None]
  - Delusion [None]
  - Hallucination [None]
  - Vomiting [None]
  - Disorientation [None]
  - Hyponatraemia [None]
  - Quadriplegia [Not Recovered/Not Resolved]
  - Restlessness [None]
  - Stupor [None]
  - Coma [None]
  - Nausea [None]
  - Osmotic demyelination syndrome [None]
  - Agitation [None]
  - Encephalopathy [None]
